FAERS Safety Report 7996812-8 (Version None)
Quarter: 2011Q4

REPORT INFORMATION
  Report Type: 
  Country: None (occurrence: None)
  Receive Date: 20111221
  Receipt Date: 20111213
  Transmission Date: 20120403
  Serious: Yes (Hospitalization, Disabling)
  Sender: FDA-Public Use
  Company Number: US-JNJFOC-20110705396

PATIENT
  Sex: Male
  Weight: 77.11 kg

DRUGS (12)
  1. PRILOSEC [Concomitant]
     Route: 065
  2. LANTUS [Concomitant]
     Indication: DIABETES MELLITUS
     Dosage: 4-5 U UNITS
     Route: 058
     Dates: start: 20100101
  3. ACTOS [Concomitant]
     Indication: DIABETES MELLITUS
     Route: 048
     Dates: end: 20100101
  4. PRAVASTATIN [Concomitant]
     Route: 065
  5. EFFEXOR [Concomitant]
     Route: 065
  6. LASIX [Concomitant]
     Route: 065
  7. SPORANOX [Suspect]
     Route: 065
     Dates: end: 20110101
  8. DIOVAN [Concomitant]
     Indication: HYPERTENSION
     Route: 048
  9. METOLAZONE [Concomitant]
     Dosage: MONDAY, WEDNESDAY AND FRIDAY
     Route: 065
  10. POTASSIUM CHLORIDE [Concomitant]
     Route: 065
  11. SPORANOX [Suspect]
     Indication: HISTOPLASMOSIS DISSEMINATED
     Route: 065
     Dates: start: 20100601, end: 20101101
  12. ASPIRIN [Concomitant]
     Route: 065

REACTIONS (2)
  - DIABETES MELLITUS [None]
  - CARDIAC FAILURE CONGESTIVE [None]
